FAERS Safety Report 4867068-X (Version None)
Quarter: 2005Q4

REPORT INFORMATION
  Report Type: 
  Country: None (occurrence: None)
  Receive Date: 20051222
  Receipt Date: 20051206
  Transmission Date: 20060501
  Serious: Yes (Hospitalization)
  Sender: FDA-Public Use
  Company Number: 200509580

PATIENT
  Age: 64 Year
  Sex: Female

DRUGS (3)
  1. EPINASTINE 10 MG TABLETS [Suspect]
     Indication: SEASONAL ALLERGY
     Dosage: PO
     Route: 048
     Dates: start: 20050307, end: 20050412
  2. NICORANDIL [Concomitant]
  3. ATORVASTATIN [Concomitant]

REACTIONS (1)
  - JAUNDICE [None]
